FAERS Safety Report 4913387-8 (Version None)
Quarter: 2006Q1

REPORT INFORMATION
  Report Type: 
  Country: None (occurrence: None)
  Receive Date: 20060210
  Receipt Date: 20060130
  Transmission Date: 20060701
  Serious: Yes (Life-Threatening, Hospitalization)
  Sender: FDA-Public Use
  Company Number: MK200601-0087-3

PATIENT
  Age: 80 Year
  Sex: Male

DRUGS (9)
  1. OPTIRAY 320 [Suspect]
     Indication: COMPUTERISED TOMOGRAM
     Dosage: 100 ML, ONCE, IV
     Route: 042
     Dates: start: 20060104, end: 20060104
  2. ROXITHROMYCIN [Concomitant]
  3. BROMHEXINE HYDROCHLORIDE [Concomitant]
  4. CARBOCISTEINE [Concomitant]
  5. TICLOPIDINE HYDROCHLORIDE [Concomitant]
  6. ASPIRIN [Concomitant]
  7. ISOSORBIDE DINITRATE [Concomitant]
  8. THEOPHYLLINE [Concomitant]
  9. NICORANDIL [Concomitant]

REACTIONS (9)
  - CYANOSIS [None]
  - HEART RATE DECREASED [None]
  - HYPOTENSION [None]
  - LARYNGEAL OEDEMA [None]
  - NAUSEA [None]
  - PHARYNGEAL OEDEMA [None]
  - PYREXIA [None]
  - RESPIRATORY ARREST [None]
  - SENSORY DISTURBANCE [None]
